FAERS Safety Report 24542866 (Version 2)
Quarter: 2025Q1

REPORT INFORMATION
  Report Type: Spontaneous
  Country: US (occurrence: US)
  Receive Date: 20241024
  Receipt Date: 20250201
  Transmission Date: 20250408
  Serious: No
  Sender: GLENMARK
  Company Number: US-GLENMARK PHARMACEUTICALS-2024GMK092949

PATIENT

DRUGS (1)
  1. RYALTRIS [Suspect]
     Active Substance: MOMETASONE FUROATE MONOHYDRATE\OLOPATADINE HYDROCHLORIDE
     Indication: Sinus disorder
     Dosage: 2 DOSAGE FORM, BID, (TWO SPRAYS IN EACH NOSTRIL, TWO TIMES A DAY)
     Route: 045
     Dates: start: 20240612

REACTIONS (5)
  - Drug dose omission by device [Unknown]
  - Product use in unapproved indication [Unknown]
  - Wrong technique in device usage process [Unknown]
  - Device delivery system issue [Unknown]
  - Product deposit [Unknown]

NARRATIVE: CASE EVENT DATE: 20240612
